FAERS Safety Report 7385309-4 (Version None)
Quarter: 2011Q1

REPORT INFORMATION
  Report Type: 
  Country: None (occurrence: None)
  Receive Date: 20110330
  Receipt Date: 20100617
  Transmission Date: 20110831
  Serious: No
  Sender: FDA-Public Use
  Company Number: US-MYLANLABS-2010S1010981

PATIENT
  Age: 7 Decade
  Sex: Female

DRUGS (7)
  1. EMSAM [Suspect]
     Route: 062
  2. EMSAM [Suspect]
     Indication: DEPRESSION
     Route: 062
  3. LEVOXYL [Concomitant]
     Indication: AUTOIMMUNE THYROIDITIS
     Route: 048
  4. EMSAM [Suspect]
     Dosage: CHANGED PATCHES QD
     Route: 062
  5. LITHIUM CARBONATE [Concomitant]
     Indication: DEPRESSION
     Route: 048
  6. ZANTAC [Concomitant]
     Route: 048
  7. EMSAM [Suspect]
     Dosage: CHANGED PATCHES QD
     Route: 062
     Dates: start: 20100601

REACTIONS (1)
  - APPLICATION SITE ERYTHEMA [None]
